FAERS Safety Report 14175120 (Version 1)
Quarter: 2017Q4

REPORT INFORMATION
  Report Type: Spontaneous
  Country: US (occurrence: US)
  Receive Date: 20171109
  Receipt Date: 20171109
  Transmission Date: 20180321
  Serious: No
  Sender: FDA-Public Use
  Company Number: US-PFIZER INC-2017479600

PATIENT
  Sex: Female

DRUGS (2)
  1. ADVIL [Suspect]
     Active Substance: IBUPROFEN
     Indication: PAIN IN EXTREMITY
     Dosage: UNK (TAKES ONE OR TWO)
  2. ADVIL [Suspect]
     Active Substance: IBUPROFEN
     Dosage: 3 DF, 1X/DAY (TAKE 3 TABLETS AT ONE TIME, TOOK 3 THE OTHER  NIGHT)

REACTIONS (2)
  - Drug ineffective [Unknown]
  - Intentional product use issue [Unknown]
